FAERS Safety Report 8516739-2 (Version None)
Quarter: 2012Q3

REPORT INFORMATION
  Report Type: 
  Country: None (occurrence: None)
  Receive Date: 20120706
  Receipt Date: 20120621
  Transmission Date: 20120928
  Serious: Yes (Death)
  Sender: FDA-Public Use
  Company Number: 2012PI047476

PATIENT
  Sex: Male

DRUGS (1)
  1. SODIUM PHENYLBUTYRATE [Suspect]
     Indication: ARGININOSUCCINATE SYNTHETASE DEFICIENCY

REACTIONS (1)
  - INFECTION [None]
